FAERS Safety Report 6098666-6 (Version None)
Quarter: 2009Q1

REPORT INFORMATION
  Report Type: 
  Country: None (occurrence: None)
  Receive Date: 20090302
  Receipt Date: 20090130
  Transmission Date: 20090719
  Serious: Yes (Death)
  Sender: FDA-Public Use
  Company Number: US-TYCO HEALTHCARE/MALLINCKRODT-T200900334

PATIENT
  Age: 39 Year
  Sex: Female

DRUGS (11)
  1. TRAMADOL HCL [Suspect]
  2. ACETAMINOPHEN/OPIOIDS [Suspect]
     Route: 048
  3. CARISOPRODOL [Suspect]
     Route: 048
  4. QUETIAPINE FUMARATE [Suspect]
     Route: 048
  5. TRAZODONE HCL [Suspect]
     Route: 048
  6. DULOXETINE [Suspect]
     Route: 048
  7. FEXOFENADINE [Suspect]
     Route: 048
  8. NAPROXEN [Suspect]
     Route: 048
  9. THYROID PREPARATIONS [Suspect]
     Route: 048
  10. CLONAZEPAM [Suspect]
     Route: 048
  11. ETHANOL [Suspect]
     Route: 048

REACTIONS (1)
  - COMPLETED SUICIDE [None]
